FAERS Safety Report 9088542 (Version 1)
Quarter: 2013Q1

REPORT INFORMATION
  Report Type: Report from Study
  Country: US (occurrence: US)
  Receive Date: 20130218
  Receipt Date: 20130218
  Transmission Date: 20140127
  Serious: No
  Sender: FDA-Public Use
  Company Number: US-ABBOTT-12P-163-0915395-00

PATIENT
  Sex: Female
  Weight: 86.26 kg

DRUGS (4)
  1. SIMCOR 500MG/20MG [Suspect]
     Indication: HIGH DENSITY LIPOPROTEIN DECREASED
     Dosage: 500MG/20MG DOSE AT BED TIME
     Dates: start: 201202
  2. SIMCOR 500MG/20MG [Suspect]
     Indication: BLOOD TRIGLYCERIDES INCREASED
  3. ASA [Concomitant]
     Indication: PRODUCT USED FOR UNKNOWN INDICATION
     Dosage: 30 MINUTES BEFORE SIMCOR
  4. UNKNOWN BLOOD PRESSURE MEDICATION [Concomitant]
     Indication: PRODUCT USED FOR UNKNOWN INDICATION
     Dosage: 1/2 TABLET

REACTIONS (4)
  - Feeling hot [Recovered/Resolved]
  - Feeling hot [Recovered/Resolved]
  - Pruritus [Recovered/Resolved]
  - Paraesthesia [Recovered/Resolved]
